FAERS Safety Report 24121087 (Version 1)
Quarter: 2024Q3

REPORT INFORMATION
  Report Type: Spontaneous
  Country: CN (occurrence: CN)
  Receive Date: 20240722
  Receipt Date: 20240722
  Transmission Date: 20241017
  Serious: Yes (Other)
  Sender: PFIZER
  Company Number: CN-PFIZER INC-PV202400093389

PATIENT
  Age: 15 Year
  Sex: Male
  Weight: 90 kg

DRUGS (2)
  1. CYTARABINE [Suspect]
     Active Substance: CYTARABINE
     Indication: Chemotherapy
     Dosage: 3500.000 MG, 2X/DAY
     Route: 041
     Dates: start: 20240616, end: 20240618
  2. MITOXANTRONE HYDROCHLORIDE [Concomitant]
     Active Substance: MITOXANTRONE HYDROCHLORIDE
     Indication: Chemotherapy
     Dosage: 15.000 MG, 1X/DAY
     Route: 041
     Dates: start: 20240616, end: 20240617

REACTIONS (3)
  - Pyrexia [Recovering/Resolving]
  - Discomfort [Unknown]
  - Rash erythematous [Unknown]

NARRATIVE: CASE EVENT DATE: 20240617
